FAERS Safety Report 11067784 (Version 1)
Quarter: 2015Q2

REPORT INFORMATION
  Report Type: Spontaneous
  Country: US (occurrence: US)
  Receive Date: 20150427
  Receipt Date: 20150427
  Transmission Date: 20150821
  Serious: Yes (Other)
  Sender: FDA-Public Use
  Company Number: US-JNJFOC-20150322103

PATIENT
  Sex: Female
  Weight: 110.22 kg

DRUGS (3)
  1. ZETIA [Concomitant]
     Active Substance: EZETIMIBE
     Indication: BLOOD CHOLESTEROL
     Route: 065
  2. WOMENS ROGAINE UNSCENTED [Suspect]
     Active Substance: MINOXIDIL
     Route: 061
  3. WOMENS ROGAINE UNSCENTED [Suspect]
     Active Substance: MINOXIDIL
     Indication: ALOPECIA
     Dosage: HALF CAPFUL
     Route: 061
     Dates: end: 20150324

REACTIONS (3)
  - Hepatic enzyme increased [Not Recovered/Not Resolved]
  - Product use issue [Unknown]
  - Product quality issue [None]
